FAERS Safety Report 20535668 (Version 1)
Quarter: 2022Q1

REPORT INFORMATION
  Report Type: Spontaneous
  Country: AM (occurrence: AM)
  Receive Date: 20220302
  Receipt Date: 20220302
  Transmission Date: 20220424
  Serious: Yes (Death)
  Sender: FDA-Public Use
  Company Number: AM-BAYER-2021A248166

PATIENT
  Age: 69 Year
  Sex: Male

DRUGS (2)
  1. XARELTO [Suspect]
     Active Substance: RIVAROXABAN
     Indication: Pulmonary embolism
     Dosage: 15 MG, BID
     Route: 048
     Dates: start: 20210927, end: 20211003
  2. COVID-19 VACCINE NOS [Suspect]
     Active Substance: COVID-19 VACCINE NOS
     Indication: Product used for unknown indication
     Dosage: UNK
     Route: 065
     Dates: start: 202109

REACTIONS (2)
  - Haemorrhagic stroke [Fatal]
  - Hypertensive crisis [Fatal]

NARRATIVE: CASE EVENT DATE: 20211004
